FAERS Safety Report 22246108 (Version 3)
Quarter: 2024Q1

REPORT INFORMATION
  Report Type: Spontaneous
  Country: US (occurrence: US)
  Receive Date: 20230424
  Receipt Date: 20240321
  Transmission Date: 20240409
  Serious: Yes (Other)
  Sender: FDA-Public Use
  Company Number: US-PFIZER INC-PV202300072712

PATIENT
  Age: 80 Year
  Sex: Male

DRUGS (2)
  1. CIBINQO [Suspect]
     Active Substance: ABROCITINIB
     Indication: Dermatitis atopic
     Dosage: 100MG QD (ONCE A DAY)
     Route: 048
     Dates: start: 20230426
  2. CIBINQO [Suspect]
     Active Substance: ABROCITINIB
     Indication: Eczema

REACTIONS (2)
  - Dementia [Not Recovered/Not Resolved]
  - Confusional state [Unknown]
